FAERS Safety Report 6131362-5 (Version None)
Quarter: 2009Q1

REPORT INFORMATION
  Report Type: 
  Country: None (occurrence: None)
  Receive Date: 20090325
  Receipt Date: 20080627
  Transmission Date: 20090719
  Serious: Yes (Other)
  Sender: FDA-Public Use
  Company Number: US-BRISTOL-MYERS SQUIBB COMPANY-14137764

PATIENT
  Age: 62 Year
  Sex: Male

DRUGS (3)
  1. ERBITUX [Suspect]
     Indication: OESOPHAGEAL ADENOCARCINOMA
     Dosage: DURATION LESS THAN 5 MIN.
     Route: 042
     Dates: start: 20080331, end: 20080331
  2. IRINOTECAN HCL [Concomitant]
  3. TAXOTERE [Concomitant]

REACTIONS (2)
  - DYSPNOEA [None]
  - ERYTHEMA [None]
